FAERS Safety Report 4823336-9 (Version None)
Quarter: 2005Q4

REPORT INFORMATION
  Report Type: 
  Country: None (occurrence: None)
  Receive Date: 20051108
  Receipt Date: 20051108
  Transmission Date: 20060501
  Serious: Yes (Other)
  Sender: FDA-Public Use
  Company Number: None

PATIENT
  Age: 4 Month
  Sex: Female
  Weight: 8.6183 kg

DRUGS (2)
  1. PULMICORT [Suspect]
     Indication: ASTHMA
     Dosage: .5 MG     2X PER DAY   NASAL
     Route: 045
     Dates: start: 20040529, end: 20051107
  2. PULMICORT [Suspect]
     Indication: HYPERSENSITIVITY
     Dosage: .5 MG     2X PER DAY   NASAL
     Route: 045
     Dates: start: 20040529, end: 20051107

REACTIONS (1)
  - GROWTH RETARDATION [None]
